FAERS Safety Report 14442390 (Version 1)
Quarter: 2018Q1

REPORT INFORMATION
  Report Type: Spontaneous
  Country: US (occurrence: US)
  Receive Date: 20180125
  Receipt Date: 20180125
  Transmission Date: 20180509
  Serious: Yes (Hospitalization)
  Sender: FDA-Public Use
  Company Number: US-SA-2017SA206236

PATIENT
  Age: 77 Year
  Sex: Male
  Weight: 112 kg

DRUGS (3)
  1. MOVANTIK [Concomitant]
     Active Substance: NALOXEGOL OXALATE
  2. DULCOLAX NOS [Suspect]
     Active Substance: BISACODYL OR DOCUSATE SODIUM
     Indication: PAIN
     Route: 065
     Dates: start: 20171014, end: 20171016
  3. COLACE [Concomitant]
     Active Substance: DOCUSATE SODIUM

REACTIONS (3)
  - Mobility decreased [Recovered/Resolved]
  - Proctalgia [Recovered/Resolved]
  - Drug ineffective [Unknown]

NARRATIVE: CASE EVENT DATE: 20171016
